FAERS Safety Report 8115549-8 (Version None)
Quarter: 2012Q1

REPORT INFORMATION
  Report Type: 
  Country: None (occurrence: None)
  Receive Date: 20120206
  Receipt Date: 20120201
  Transmission Date: 20120608
  Serious: Yes (Death, Life-Threatening)
  Sender: FDA-Public Use
  Company Number: JP-ELI_LILLY_AND_COMPANY-JP201201001573

PATIENT
  Age: 72 Year
  Sex: Male

DRUGS (3)
  1. VITAMIN B-12 [Concomitant]
     Dosage: UNK
  2. ALIMTA [Suspect]
     Indication: NON-SMALL CELL LUNG CANCER STAGE IV
     Dosage: 500 MG, OTHER
     Dates: start: 20100413
  3. FOLIC ACID [Concomitant]
     Dosage: UNK

REACTIONS (2)
  - DYSPNOEA [None]
  - NEOPLASM PROGRESSION [None]
